FAERS Safety Report 6638888-6 (Version None)
Quarter: 2010Q1

REPORT INFORMATION
  Report Type: 
  Country: None (occurrence: None)
  Receive Date: 20100317
  Receipt Date: 20100309
  Transmission Date: 20100710
  Serious: Yes (Death, Life-Threatening, Hospitalization)
  Sender: FDA-Public Use
  Company Number: GXKR2010CZ02424

PATIENT
  Sex: Male

DRUGS (4)
  1. AZITHROMYCIN SANDOZ (NGX) [Suspect]
     Indication: TRACHEITIS
     Dosage: 1 DF/DAY
     Route: 048
     Dates: start: 20100211, end: 20100213
  2. GLYCLADA [Concomitant]
  3. THEOPHYLLINE [Concomitant]
  4. SALBUTAMOL [Concomitant]

REACTIONS (6)
  - BLOOD PRESSURE DECREASED [None]
  - GASTROINTESTINAL HAEMORRHAGE [None]
  - HEPATIC FAILURE [None]
  - INTESTINAL HAEMORRHAGE [None]
  - RASH GENERALISED [None]
  - RENAL FAILURE [None]
